FAERS Safety Report 8416529-5 (Version None)
Quarter: 2012Q2

REPORT INFORMATION
  Report Type: 
  Country: None (occurrence: None)
  Receive Date: 20120606
  Receipt Date: 20120531
  Transmission Date: 20120825
  Serious: Yes (Death)
  Sender: FDA-Public Use
  Company Number: BR-VIIV HEALTHCARE LIMITED-A0979722A

PATIENT
  Sex: Male

DRUGS (11)
  1. TENOFOVIR DISOPROXIL FUMARATE [Concomitant]
  2. DARUNAVIR HYDRATE [Concomitant]
  3. RALTEGRAVIR [Concomitant]
  4. BIPERIDEN HYDROCHLORIDE TAB [Concomitant]
     Indication: EPILEPSY
  5. MARAVIROC [Suspect]
     Indication: PRODUCT USED FOR UNKNOWN INDICATION
     Route: 065
     Dates: start: 20080502
  6. PHENYTOIN [Concomitant]
  7. CAPTOPRIL [Concomitant]
  8. HALOPERIDOL [Concomitant]
  9. LEVOPROMAZINE [Concomitant]
  10. RITONAVIR [Concomitant]
  11. LAMIVUDINE (EPIVIR HBV) [Concomitant]

REACTIONS (1)
  - DEATH [None]
